FAERS Safety Report 9205758 (Version 2)
Quarter: 2013Q3

REPORT INFORMATION
  Report Type: Spontaneous
  Country: SR (occurrence: None)
  Receive Date: 20130401
  Receipt Date: 20130820
  Transmission Date: 20140515
  Serious: Yes (Death)
  Sender: FDA-Public Use
  Company Number: 1646959

PATIENT
  Age: 2 Week
  Sex: 0

DRUGS (7)
  1. NORADRENALINE TARTRATE [Suspect]
     Indication: SEPTIC SHOCK
     Dates: start: 20120429, end: 20120501
  2. ADRENALINE [Concomitant]
  3. CORTICOSTEROID NOS [Concomitant]
  4. CEFOTAXIME [Concomitant]
  5. AMPICILLIN [Concomitant]
  6. INSULIN [Concomitant]
  7. OTHER BLOOD PRODUCTS [Concomitant]

REACTIONS (16)
  - Adverse event [None]
  - Metabolic acidosis [None]
  - Anion gap increased [None]
  - Inborn error of metabolism [None]
  - Blood lactic acid increased [None]
  - Renal failure [None]
  - Peritoneal dialysis [None]
  - Infection [None]
  - Medical device complication [None]
  - Skin disorder [None]
  - Hyperglycaemia [None]
  - Coagulopathy [None]
  - Brain death [None]
  - Maple syrup disease [None]
  - Brain oedema [None]
  - Cerebral infarction [None]
